FAERS Safety Report 10922977 (Version 2)
Quarter: 2015Q2

REPORT INFORMATION
  Report Type: Spontaneous
  Country: JP (occurrence: JP)
  Receive Date: 20150317
  Receipt Date: 20150401
  Transmission Date: 20150821
  Serious: Yes (Death)
  Sender: FDA-Public Use
  Company Number: JP-PFIZER INC-2015088914

PATIENT
  Age: 6 Decade
  Sex: Male

DRUGS (1)
  1. TORISEL [Suspect]
     Active Substance: TEMSIROLIMUS
     Indication: RENAL CELL CARCINOMA
     Dosage: UNK
     Dates: start: 20110214, end: 20110322

REACTIONS (2)
  - Disease progression [Fatal]
  - Renal cell carcinoma [Fatal]

NARRATIVE: CASE EVENT DATE: 20110612
